FAERS Safety Report 8874254 (Version 2)
Quarter: 2012Q4

REPORT INFORMATION
  Report Type: 
  Country: US (occurrence: US)
  Receive Date: 20121030
  Receipt Date: 20121220
  Transmission Date: 20130627
  Serious: Yes (Other)
  Sender: FDA-Public Use
  Company Number: US-PFIZER INC-2012268466

PATIENT
  Age: 42 Year
  Sex: Male
  Weight: 68.93 kg

DRUGS (5)
  1. ZOLOFT [Suspect]
     Indication: DEPRESSION
     Dosage: 25 mg, 1x/day
     Route: 048
     Dates: start: 2008
  2. ZOLOFT [Suspect]
     Dosage: 50 mg, 1x/day
     Route: 048
  3. ZOLOFT [Suspect]
     Dosage: 100 mg, 1x/day
     Route: 048
  4. ZOLOFT [Suspect]
     Dosage: UNK
     Route: 048
  5. DILANTIN [Concomitant]
     Dosage: UNK

REACTIONS (1)
  - Brain neoplasm [Not Recovered/Not Resolved]
